FAERS Safety Report 9697402 (Version 1)
Quarter: 2013Q4

REPORT INFORMATION
  Report Type: Spontaneous
  Country: US (occurrence: None)
  Receive Date: 20131119
  Receipt Date: 20131119
  Transmission Date: 20140711
  Serious: Yes (Other)
  Sender: FDA-Public Use
  Company Number: None

PATIENT
  Age: 37 Year
  Sex: Female
  Weight: 88.45 kg

DRUGS (1)
  1. MIRVASO [Suspect]
     Indication: ROSACEA
     Dosage: PEA-SIZE AMOUTN X ONCE DAILY APPLIED TO A SURFANCE, USUALLY THE SKIN
     Route: 061
     Dates: start: 20131114, end: 20131116

REACTIONS (6)
  - Flushing [None]
  - Erythema [None]
  - Condition aggravated [None]
  - Pain [None]
  - Skin warm [None]
  - Feeling abnormal [None]
